FAERS Safety Report 10540311 (Version 1)
Quarter: 2014Q4

REPORT INFORMATION
  Report Type: Spontaneous
  Country: US (occurrence: US)
  Receive Date: 20141024
  Receipt Date: 20141024
  Transmission Date: 20150529
  Serious: No
  Sender: FDA-Public Use
  Company Number: US-PFIZER INC-2014290752

PATIENT
  Age: 79 Year
  Sex: Female

DRUGS (3)
  1. ATENOLOL. [Concomitant]
     Active Substance: ATENOLOL
     Dosage: 25 MG EACH DAY, BROKEN INTO THREE DAILY DOSES
  2. XANAX [Suspect]
     Active Substance: ALPRAZOLAM
     Indication: ANXIETY
     Dosage: 1 MG, 4X/DAY
     Route: 048
     Dates: end: 20141020
  3. XANAX [Suspect]
     Active Substance: ALPRAZOLAM
     Indication: STRESS

REACTIONS (3)
  - Glossodynia [Not Recovered/Not Resolved]
  - Skin burning sensation [Recovered/Resolved]
  - Oral discomfort [Recovered/Resolved]

NARRATIVE: CASE EVENT DATE: 20141020
